FAERS Safety Report 8121465 (Version 6)
Quarter: 2015Q2

REPORT INFORMATION
  Report Type: Spontaneous
  Country: US (occurrence: US)
  Receive Date: 20110906
  Receipt Date: 20150520
  Transmission Date: 20150821
  Serious: Yes (Hospitalization, Other)
  Sender: FDA-Public Use
  Company Number: US-AMGEN-USASP2011045041

PATIENT
  Age: 9 Year
  Sex: Male

DRUGS (1)
  1. XGEVA [Suspect]
     Active Substance: DENOSUMAB
     Indication: FIBROUS DYSPLASIA OF BONE
     Dosage: 1.5 MG, QMO
     Route: 065
     Dates: start: 201102

REACTIONS (7)
  - Vomiting [Recovered/Resolved]
  - Fall [Unknown]
  - Hypocalcaemia [Unknown]
  - Hyperparathyroidism secondary [Unknown]
  - Hypophosphataemia [Unknown]
  - Femur fracture [Recovered/Resolved]
  - Hypercalcaemia [Recovered/Resolved]
